FAERS Safety Report 8598737-6 (Version None)
Quarter: 2012Q3

REPORT INFORMATION
  Report Type: 
  Country: None (occurrence: None)
  Receive Date: 20120816
  Receipt Date: 19940701
  Transmission Date: 20120928
  Serious: Yes (Other)
  Sender: FDA-Public Use
  Company Number: US-ROCHE-1100926

PATIENT
  Sex: Male

DRUGS (5)
  1. HEPARIN [Concomitant]
     Dosage: UNITS
  2. LOPRESSOR [Concomitant]
  3. NITROGLYCERIN [Concomitant]
     Dosage: LOW DOSE
  4. SODIUM CHLORIDE [Concomitant]
     Dosage: 100 TO 150 CC PER HOUR
  5. ACTIVASE [Suspect]
     Indication: ACUTE MYOCARDIAL INFARCTION

REACTIONS (3)
  - CHEST PAIN [None]
  - HYPOTENSION [None]
  - ELECTROCARDIOGRAM ST SEGMENT ELEVATION [None]
